FAERS Safety Report 18591014 (Version 2)
Quarter: 2021Q4

REPORT INFORMATION
  Report Type: Report from Study
  Country: DE (occurrence: DE)
  Receive Date: 20201208
  Receipt Date: 20211214
  Transmission Date: 20220303
  Serious: Yes (Hospitalization)
  Sender: FDA-Public Use
  Company Number: DE-ACCORD-207568

PATIENT
  Sex: Male
  Weight: 70 kg

DRUGS (3)
  1. PEGFILGRASTIM [Suspect]
     Active Substance: PEGFILGRASTIM
     Indication: Product used for unknown indication
     Dosage: FIRST CYCLE
     Dates: start: 20200220
  2. PEGFILGRASTIM [Suspect]
     Active Substance: PEGFILGRASTIM
     Dosage: SECOND CYCLE
     Dates: start: 20200310
  3. PEGFILGRASTIM [Suspect]
     Active Substance: PEGFILGRASTIM
     Indication: Product used for unknown indication
     Dosage: 3RD CYCLE; STRENGTH: 6 MG
     Route: 058
     Dates: start: 20200422, end: 20200422

REACTIONS (1)
  - Haemoptysis [Not Recovered/Not Resolved]

NARRATIVE: CASE EVENT DATE: 20200504
